FAERS Safety Report 21788792 (Version 2)
Quarter: 2022Q4

REPORT INFORMATION
  Report Type: Spontaneous
  Country: US (occurrence: US)
  Receive Date: 20221228
  Receipt Date: 20221230
  Transmission Date: 20230112
  Serious: No
  Sender: FDA-Public Use
  Company Number: US-PFIZER INC-202201398445

PATIENT
  Age: 49 Year
  Sex: Female
  Weight: 90.72 kg

DRUGS (1)
  1. VERAPAMIL HCL [Suspect]
     Active Substance: VERAPAMIL HYDROCHLORIDE
     Indication: Blood pressure measurement
     Dosage: UNK

REACTIONS (2)
  - Allergic reaction to excipient [Unknown]
  - Product use in unapproved indication [Unknown]
